FAERS Safety Report 25846990 (Version 1)
Quarter: 2025Q3

REPORT INFORMATION
  Report Type: Spontaneous
  Country: US (occurrence: US)
  Receive Date: 20250925
  Receipt Date: 20250925
  Transmission Date: 20251021
  Serious: No
  Sender: MYLAN
  Company Number: US-MYLANLABS-2025M1076795

PATIENT
  Sex: Female

DRUGS (8)
  1. BREYNA [Suspect]
     Active Substance: BUDESONIDE\FORMOTEROL FUMARATE
     Indication: Dyspnoea
     Dosage: 320 MICROGRAM, BID (INHALE 2 PUFFS INTO THE LUNGS TWICE DAILY)
     Route: 055
     Dates: start: 2025
  2. BREYNA [Suspect]
     Active Substance: BUDESONIDE\FORMOTEROL FUMARATE
     Dosage: 320 MICROGRAM, BID (INHALE 2 PUFFS INTO THE LUNGS TWICE DAILY)
     Dates: start: 2025
  3. BREYNA [Suspect]
     Active Substance: BUDESONIDE\FORMOTEROL FUMARATE
     Dosage: 320 MICROGRAM, BID (INHALE 2 PUFFS INTO THE LUNGS TWICE DAILY)
     Dates: start: 2025
  4. BREYNA [Suspect]
     Active Substance: BUDESONIDE\FORMOTEROL FUMARATE
     Dosage: 320 MICROGRAM, BID (INHALE 2 PUFFS INTO THE LUNGS TWICE DAILY)
     Route: 055
     Dates: start: 2025
  5. BREYNA [Suspect]
     Active Substance: BUDESONIDE\FORMOTEROL FUMARATE
     Dosage: 320 MICROGRAM, BID (INHALE 2 PUFFS INTO THE LUNGS TWICE DAILY)
     Route: 055
     Dates: start: 20250905
  6. BREYNA [Suspect]
     Active Substance: BUDESONIDE\FORMOTEROL FUMARATE
     Dosage: 320 MICROGRAM, BID (INHALE 2 PUFFS INTO THE LUNGS TWICE DAILY)
     Dates: start: 20250905
  7. BREYNA [Suspect]
     Active Substance: BUDESONIDE\FORMOTEROL FUMARATE
     Dosage: 320 MICROGRAM, BID (INHALE 2 PUFFS INTO THE LUNGS TWICE DAILY)
     Dates: start: 20250905
  8. BREYNA [Suspect]
     Active Substance: BUDESONIDE\FORMOTEROL FUMARATE
     Dosage: 320 MICROGRAM, BID (INHALE 2 PUFFS INTO THE LUNGS TWICE DAILY)
     Route: 055
     Dates: start: 20250905

REACTIONS (2)
  - Device malfunction [Unknown]
  - Wrong technique in product usage process [Unknown]

NARRATIVE: CASE EVENT DATE: 20250101
